FAERS Safety Report 9852722 (Version 1)
Quarter: 2014Q1

REPORT INFORMATION
  Report Type: Spontaneous
  Country: US (occurrence: US)
  Receive Date: 20140129
  Receipt Date: 20140129
  Transmission Date: 20141002
  Serious: No
  Sender: FDA-Public Use
  Company Number: US-BAYER-2014-014808

PATIENT
  Age: 16 Year
  Sex: Female
  Weight: 59 kg

DRUGS (2)
  1. ALEVE CAPLET [Suspect]
     Indication: HEADACHE
     Dosage: 2 DF, UNK AND SHE HAD MORE THAN 3 IN 24 HOURS
     Route: 048
  2. ALEVE CAPLET [Suspect]
     Indication: ABDOMINAL PAIN UPPER

REACTIONS (2)
  - Drug ineffective [None]
  - Extra dose administered [None]
